FAERS Safety Report 5168481-6 (Version None)
Quarter: 2006Q4

REPORT INFORMATION
  Report Type: 
  Country: None (occurrence: None)
  Receive Date: 20061208
  Receipt Date: 20061128
  Transmission Date: 20070319
  Serious: Yes (Other)
  Sender: FDA-Public Use
  Company Number: CA-ROCHE-472761

PATIENT
  Age: 80 Year
  Sex: Female

DRUGS (9)
  1. TAMIFLU [Suspect]
     Indication: DRUG USE FOR UNKNOWN INDICATION
     Route: 048
  2. TAMOXIFEN CITRATE [Concomitant]
     Route: 048
  3. NORVASC [Concomitant]
     Route: 048
  4. VASOTEC [Concomitant]
     Route: 048
  5. LACTULOSE [Concomitant]
     Route: 048
  6. DOMPERIDONE [Concomitant]
  7. PERCOCET [Concomitant]
     Route: 048
  8. PARIET [Concomitant]
     Route: 048
  9. BECONASE AQ [Concomitant]

REACTIONS (2)
  - BLOOD CREATININE INCREASED [None]
  - DELUSION [None]
